FAERS Safety Report 10274240 (Version 3)
Quarter: 2015Q3

REPORT INFORMATION
  Report Type: Spontaneous
  Country: US (occurrence: US)
  Receive Date: 20140702
  Receipt Date: 20150929
  Transmission Date: 20151125
  Serious: No
  Sender: FDA-Public Use
  Company Number: US-PFIZER INC-2014180183

PATIENT
  Age: 39 Year
  Sex: Female
  Weight: 107 kg

DRUGS (5)
  1. DISOPYRAMIDE [Suspect]
     Active Substance: DISOPYRAMIDE
     Indication: ATRIAL FIBRILLATION
     Dosage: 100 MG, 4X/DAY
     Route: 048
     Dates: start: 20150911, end: 20150912
  2. PREVACID [Concomitant]
     Active Substance: LANSOPRAZOLE
     Indication: GASTROOESOPHAGEAL REFLUX DISEASE
     Dosage: UNK
  3. DISOPYRAMIDE [Suspect]
     Active Substance: DISOPYRAMIDE
     Indication: HEART RATE IRREGULAR
  4. DISOPYRAMIDE [Suspect]
     Active Substance: DISOPYRAMIDE
     Indication: HEART RATE IRREGULAR
     Dosage: 100 MG, 2X/DAY
     Route: 048
     Dates: start: 201406
  5. LYRICA [Concomitant]
     Active Substance: PREGABALIN
     Indication: FIBROMYALGIA
     Dosage: UNK

REACTIONS (8)
  - Vision blurred [Unknown]
  - Wrong technique in product usage process [Unknown]
  - Anxiety [Unknown]
  - Feeling jittery [Unknown]
  - Heart rate abnormal [Not Recovered/Not Resolved]
  - Headache [Unknown]
  - Temperature intolerance [Unknown]
  - Asthenia [Unknown]

NARRATIVE: CASE EVENT DATE: 201406
